FAERS Safety Report 6546742-3 (Version None)
Quarter: 2010Q1

REPORT INFORMATION
  Report Type: 
  Country: None (occurrence: None)
  Receive Date: 20100119
  Receipt Date: 20090626
  Transmission Date: 20100710
  Serious: Yes (Other)
  Sender: FDA-Public Use
  Company Number: A-US2009-25405

PATIENT
  Age: 77 Year
  Sex: Male
  Weight: 90.4 kg

DRUGS (2)
  1. TRACLEER [Suspect]
     Indication: PULMONARY HYPERTENSION
     Dosage: 62.5 MG, BID, ORAL ; 125 MG, BID, ORAL
     Route: 048
     Dates: end: 20090520
  2. TRACLEER [Suspect]
     Indication: PULMONARY HYPERTENSION
     Dosage: 62.5 MG, BID, ORAL ; 125 MG, BID, ORAL
     Route: 048
     Dates: start: 20090526

REACTIONS (3)
  - OEDEMA PERIPHERAL [None]
  - SWELLING [None]
  - WEIGHT INCREASED [None]
